FAERS Safety Report 24590975 (Version 3)
Quarter: 2024Q4

REPORT INFORMATION
  Report Type: Spontaneous
  Country: US (occurrence: US)
  Receive Date: 20241107
  Receipt Date: 20241114
  Transmission Date: 20250115
  Serious: Yes (Other)
  Sender: ROCHE
  Company Number: US-ROCHE-10000123138

PATIENT
  Sex: Male
  Weight: 77.1 kg

DRUGS (7)
  1. ESBRIET [Suspect]
     Active Substance: PIRFENIDONE
     Indication: Idiopathic pulmonary fibrosis
     Route: 048
     Dates: start: 20240715, end: 20241001
  2. LISINOPRIL [Concomitant]
     Active Substance: LISINOPRIL
  3. METHOCARBAMOL [Concomitant]
     Active Substance: METHOCARBAMOL
  4. ATORVASTATIN [Concomitant]
     Active Substance: ATORVASTATIN
  5. TAMSULOSIN [Concomitant]
     Active Substance: TAMSULOSIN
  6. GABAPENTIN [Concomitant]
     Active Substance: GABAPENTIN
  7. CALCIUM [Concomitant]
     Active Substance: CALCIUM

REACTIONS (2)
  - Feeling drunk [Recovered/Resolved]
  - Dizziness [Recovered/Resolved]
